FAERS Safety Report 12310472 (Version 4)
Quarter: 2016Q3

REPORT INFORMATION
  Report Type: Spontaneous
  Country: US (occurrence: US)
  Receive Date: 20160427
  Receipt Date: 20160706
  Transmission Date: 20161109
  Serious: No
  Sender: FDA-Public Use
  Company Number: US-AMGEN-USASP2016046831

PATIENT
  Age: 85 Year
  Sex: Female
  Weight: 61.22 kg

DRUGS (10)
  1. PROLIA [Suspect]
     Active Substance: DENOSUMAB
     Indication: OSTEOPOROSIS POSTMENOPAUSAL
     Dosage: 60 MG, UNK
     Route: 058
     Dates: start: 20150922
  2. ALEVE [Concomitant]
     Active Substance: NAPROXEN SODIUM
     Dosage: UNK
     Route: 048
     Dates: start: 20150125
  3. CEPHALEXIN. [Concomitant]
     Active Substance: CEPHALEXIN
     Dosage: 500 MG, 1 CAP THREE TIMES A DAY
     Route: 048
     Dates: start: 20151021
  4. FLUOROMETHOLONE. [Concomitant]
     Active Substance: FLUOROMETHOLONE
     Dosage: 0.1 %, UNK
     Route: 065
     Dates: start: 20151016
  5. VITAMIN D [Concomitant]
     Active Substance: CHOLECALCIFEROL
     Dosage: UNK UNK, QD
     Route: 048
     Dates: start: 20130816
  6. TRAMADOL HCL [Concomitant]
     Active Substance: TRAMADOL HYDROCHLORIDE
     Dosage: 50 MG, Q8H
     Route: 048
     Dates: start: 20151030
  7. MELOXICAM. [Concomitant]
     Active Substance: MELOXICAM
     Dosage: 7.5 MG, UNK
     Route: 048
     Dates: start: 20151113
  8. VITAMIN B12 [Concomitant]
     Active Substance: CYANOCOBALAMIN
     Dosage: 1000 MUG, QD
     Route: 048
     Dates: start: 20151021
  9. LUTEIN [Concomitant]
     Active Substance: LUTEIN
     Dosage: UNK UNK, BID
     Route: 048
     Dates: start: 20150518
  10. CALCIUM [Concomitant]
     Active Substance: CALCIUM
     Dosage: UNK
     Dates: start: 20130529

REACTIONS (23)
  - Skin ulcer [Not Recovered/Not Resolved]
  - Contusion [Unknown]
  - Arthralgia [Unknown]
  - Upper respiratory tract infection [Unknown]
  - Temporal arteritis [Not Recovered/Not Resolved]
  - Viral pharyngitis [Unknown]
  - C-reactive protein increased [Unknown]
  - Osteoporosis [Unknown]
  - Myalgia [Unknown]
  - Bone contusion [Unknown]
  - Urinary tract infection [Unknown]
  - Joint injury [Unknown]
  - Oropharyngeal pain [Unknown]
  - Vitamin D deficiency [Unknown]
  - Ligament sprain [Unknown]
  - Fatigue [Unknown]
  - Headache [Unknown]
  - Fall [Unknown]
  - Back pain [Unknown]
  - Chills [Unknown]
  - Red blood cell sedimentation rate increased [Unknown]
  - Rhinalgia [Unknown]
  - Anaemia [Unknown]

NARRATIVE: CASE EVENT DATE: 20150922
